FAERS Safety Report 4540923-6 (Version None)
Quarter: 2004Q4

REPORT INFORMATION
  Report Type: 
  Country: None (occurrence: None)
  Receive Date: 20041229
  Receipt Date: 20041207
  Transmission Date: 20050328
  Serious: No
  Sender: FDA-Public Use
  Company Number: FR-GLAXOSMITHKLINE-B0359394A

PATIENT
  Age: 79 Year
  Sex: Male
  Weight: 80 kg

DRUGS (8)
  1. VENTOLIN [Suspect]
     Indication: PULMONARY FUNCTION TEST
     Dosage: 2PUFF PER DAY
     Route: 055
     Dates: start: 20041207, end: 20041207
  2. AMLODIPINE [Concomitant]
     Route: 048
  3. SOTALOL HCL [Concomitant]
  4. APROVEL [Concomitant]
     Route: 048
  5. ELISOR [Concomitant]
     Route: 048
  6. CARDEGIC [Concomitant]
  7. QUITAXON [Concomitant]
  8. RIVOTRIL [Concomitant]

REACTIONS (5)
  - BRONCHOSPASM [None]
  - CHILLS [None]
  - DYSPNOEA [None]
  - PYREXIA [None]
  - TREMOR [None]
